FAERS Safety Report 9964644 (Version 1)
Quarter: 2014Q1

REPORT INFORMATION
  Report Type: Spontaneous
  Country: US (occurrence: US)
  Receive Date: 20140305
  Receipt Date: 20140305
  Transmission Date: 20141002
  Serious: No
  Sender: FDA-Public Use
  Company Number: US-AMGEN-USASP2013085315

PATIENT
  Age: 46 Year
  Sex: Female

DRUGS (8)
  1. ENBREL [Suspect]
     Indication: PRODUCT USED FOR UNKNOWN INDICATION
     Dosage: 50 MG, EVERY WEEK
     Route: 058
  2. AMBIEN [Concomitant]
     Dosage: 5 MG, UNK
  3. HYDROCODONE W/APAP                 /01554201/ [Concomitant]
     Dosage: 5 - 325 MG, UNK
  4. LEVOTHYROXIN [Concomitant]
     Dosage: 100 MCG, UNK
  5. BENAZEPRIL [Concomitant]
     Dosage: 5 MG, UNK
  6. SERTRALINE [Concomitant]
     Dosage: 25 MG, UNK
  7. METHOTREXATE [Concomitant]
     Dosage: UNK
  8. FOLIC ACID [Concomitant]
     Dosage: 1 MG, UNK

REACTIONS (1)
  - Injection site urticaria [Unknown]
